FAERS Safety Report 14149994 (Version 1)
Quarter: 2017Q4

REPORT INFORMATION
  Report Type: Other
  Country: DK (occurrence: DK)
  Receive Date: 20171101
  Receipt Date: 20171101
  Transmission Date: 20180321
  Serious: Yes (Hospitalization)
  Sender: FDA-Public Use
  Company Number: DK-GE HEALTHCARE LIFE SCIENCES-2017CSU003477

PATIENT

DRUGS (1)
  1. OMNIPAQUE [Suspect]
     Active Substance: IOHEXOL
     Indication: HEADACHE
     Dosage: 70 ML, SINGLE
     Route: 037
     Dates: start: 20170712, end: 20170712

REACTIONS (9)
  - Hyperthyroidism [Unknown]
  - Abnormal loss of weight [Unknown]
  - Oedema peripheral [Recovered/Resolved with Sequelae]
  - Basedow^s disease [Unknown]
  - Haemoglobin decreased [Unknown]
  - Blood creatinine decreased [Unknown]
  - Blood thyroid stimulating hormone decreased [Unknown]
  - Liver disorder [Unknown]
  - Alanine aminotransferase increased [Unknown]

NARRATIVE: CASE EVENT DATE: 201707
